FAERS Safety Report 5359636-6 (Version None)
Quarter: 2007Q2

REPORT INFORMATION
  Report Type: 
  Country: None (occurrence: None)
  Receive Date: 20070530
  Receipt Date: 20061020
  Transmission Date: 20071010
  Serious: Yes (Hospitalization)
  Sender: FDA-Public Use
  Company Number: US200606001918

PATIENT
  Age: 62 Year
  Sex: Male
  Weight: 97.5 kg

DRUGS (6)
  1. ZYPREXA [Suspect]
     Indication: DEPRESSION
     Dosage: 10 MG
     Dates: start: 19980101
  2. ZIPRASIDONE [Concomitant]
  3. CITALOPRAM [Concomitant]
  4. TRAZODONE HCL [Concomitant]
  5. PROPRANOLOL [Concomitant]
  6. PREDNISONE [Concomitant]

REACTIONS (4)
  - BLOOD CHOLESTEROL ABNORMAL [None]
  - DIABETES MELLITUS [None]
  - HYPERTENSION [None]
  - METABOLIC DISORDER [None]
